FAERS Safety Report 5776163-2 (Version None)
Quarter: 2008Q2

REPORT INFORMATION
  Report Type: 
  Country: None (occurrence: None)
  Receive Date: 20080613
  Receipt Date: 20080529
  Transmission Date: 20081010
  Serious: Yes (Other)
  Sender: FDA-Public Use
  Company Number: JPI-P-003869

PATIENT
  Age: 68 Year
  Sex: Female

DRUGS (10)
  1. LUVOX [Suspect]
     Indication: DEPRESSION
     Dosage: (50 MG, 1 D), ORAL; (100 MG, 1 D), ORAL; (150 MG, 1 D), ORAL; (50 MG, 1 D), ORAL
     Route: 048
     Dates: start: 20080328, end: 20080403
  2. LUVOX [Suspect]
     Indication: DEPRESSION
     Dosage: (50 MG, 1 D), ORAL; (100 MG, 1 D), ORAL; (150 MG, 1 D), ORAL; (50 MG, 1 D), ORAL
     Route: 048
     Dates: start: 20080404, end: 20080408
  3. LUVOX [Suspect]
     Indication: DEPRESSION
     Dosage: (50 MG, 1 D), ORAL; (100 MG, 1 D), ORAL; (150 MG, 1 D), ORAL; (50 MG, 1 D), ORAL
     Route: 048
     Dates: start: 20080409, end: 20080514
  4. LUVOX [Suspect]
     Indication: DEPRESSION
     Dosage: (50 MG, 1 D), ORAL; (100 MG, 1 D), ORAL; (150 MG, 1 D), ORAL; (50 MG, 1 D), ORAL
     Route: 048
     Dates: start: 20080510, end: 20080514
  5. CLARITHROMYCIN [Suspect]
     Indication: DRUG USE FOR UNKNOWN INDICATION
     Dosage: (200 MG), ORAL
     Route: 048
     Dates: end: 20080510
  6. AMLODIPINE BESYLATE [Concomitant]
  7. RALOXIFENE HCL [Concomitant]
  8. ACETYLSALICYLIC ACID SRT [Concomitant]
  9. MOSAPRIDE CITRATE (MOSAPRIDE CITRATE) [Concomitant]
  10. BROTIZOLAM (BROTIZOLAM) [Concomitant]

REACTIONS (4)
  - ALANINE AMINOTRANSFERASE INCREASED [None]
  - ASPARTATE AMINOTRANSFERASE INCREASED [None]
  - BLOOD ALKALINE PHOSPHATASE INCREASED [None]
  - HEPATIC FUNCTION ABNORMAL [None]
